FAERS Safety Report 10086145 (Version 1)
Quarter: 2014Q2

REPORT INFORMATION
  Report Type: Spontaneous
  Country: FR (occurrence: None)
  Receive Date: 20140416
  Receipt Date: 20140416
  Transmission Date: 20141212
  Serious: Yes (Hospitalization)
  Sender: FDA-Public Use
  Company Number: 7281724

PATIENT
  Age: 60 Year
  Sex: Female

DRUGS (3)
  1. LEVOTHYROX (LEVOTHYROXINE SODIUM) (LEVOTHYROXINE SODIUM) [Suspect]
     Indication: HYPOTHYROIDISM
     Dosage: 50 MG, 1 - 1 D
     Route: 048
  2. VICKS/00048102 (DEXTROMETHORPHAN HYDROBROMIDE) [Suspect]
     Indication: COUGH
     Route: 048
     Dates: start: 20140301, end: 20140308
  3. CRESTOR [Concomitant]

REACTIONS (5)
  - Loss of consciousness [None]
  - Somnolence [None]
  - Fall [None]
  - Injury [None]
  - Productive cough [None]
